FAERS Safety Report 15756819 (Version 2)
Quarter: 2019Q1

REPORT INFORMATION
  Report Type: Report from Study
  Country: CA (occurrence: CA)
  Receive Date: 20181224
  Receipt Date: 20190102
  Transmission Date: 20190417
  Serious: Yes (Death, Other)
  Sender: FDA-Public Use
  Company Number: CA-ASTELLAS-2017US029879

PATIENT

DRUGS (1)
  1. ERLOTINIB [Suspect]
     Active Substance: ERLOTINIB
     Indication: SQUAMOUS CELL CARCINOMA OF LUNG
     Dosage: UNK, UNKNOWN FREQ.
     Route: 048

REACTIONS (19)
  - Multiple organ dysfunction syndrome [Fatal]
  - Acne [Unknown]
  - Pulmonary embolism [Unknown]
  - Nausea [Unknown]
  - Decreased appetite [Unknown]
  - Vomiting [Unknown]
  - Haemoptysis [Unknown]
  - Rash [Unknown]
  - Dyspnoea [Unknown]
  - Respiratory failure [Fatal]
  - Hepatic function abnormal [Fatal]
  - Constipation [Unknown]
  - Cough [Unknown]
  - Dehydration [Unknown]
  - Diarrhoea [Unknown]
  - Fatigue [Unknown]
  - Paronychia [Unknown]
  - Hypokalaemia [Unknown]
  - Stomatitis [Unknown]
